FAERS Safety Report 15116471 (Version 2)
Quarter: 2018Q4

REPORT INFORMATION
  Report Type: Spontaneous
  Country: FR (occurrence: FR)
  Receive Date: 20180706
  Receipt Date: 20181022
  Transmission Date: 20190204
  Serious: Yes (Hospitalization)
  Sender: FDA-Public Use
  Company Number: FR-PFIZER INC-2018268065

PATIENT
  Age: 35 Year
  Sex: Female
  Weight: 57 kg

DRUGS (4)
  1. MINOXIDIL. [Suspect]
     Active Substance: MINOXIDIL
     Indication: HYPERANDROGENISM
     Dosage: 1 DF, 1X/DAY
     Route: 003
     Dates: end: 20180323
  2. PROVAMES [Suspect]
     Active Substance: ESTRADIOL
     Indication: HYPERANDROGENISM
     Dosage: 1 DF, 1X/DAY
     Route: 048
     Dates: end: 20180323
  3. PROGESTOGEL [Concomitant]
     Indication: ALOPECIA
     Route: 003
  4. CYPROTERONE ACETATE [Suspect]
     Active Substance: CYPROTERONE ACETATE
     Indication: HYPERANDROGENISM
     Dosage: 50 MG, 1X/DAY
     Route: 048
     Dates: end: 20180323

REACTIONS (1)
  - Meningioma [Recovering/Resolving]

NARRATIVE: CASE EVENT DATE: 20180323
